FAERS Safety Report 11491422 (Version 1)
Quarter: 2015Q3

REPORT INFORMATION
  Report Type: Spontaneous
  Country: US (occurrence: US)
  Receive Date: 20150910
  Receipt Date: 20150910
  Transmission Date: 20151125
  Serious: No
  Sender: FDA-Public Use
  Company Number: US-BAYER-2015-418300

PATIENT
  Age: 11 Year
  Sex: Male
  Weight: 54.42 kg

DRUGS (1)
  1. CHILDREN CLARITIN ALLERGY [Suspect]
     Active Substance: LORATADINE
     Dosage: 4 DF, UNK
     Dates: start: 20150908

REACTIONS (1)
  - Product use issue [None]

NARRATIVE: CASE EVENT DATE: 20150908
